FAERS Safety Report 9177632 (Version 1)
Quarter: 2012Q4

REPORT INFORMATION
  Report Type: 
  Country: IT (occurrence: IT)
  Receive Date: 20121005
  Receipt Date: 20121005
  Transmission Date: 20130627
  Serious: Yes (Death)
  Sender: FDA-Public Use
  Company Number: IT-RB-045202-12

PATIENT
  Age: 45 Year
  Sex: Male
  Weight: 83.5 kg

DRUGS (10)
  1. BUPRENORPHINE [Suspect]
     Dosage: 0.15 mg (on demand) repeatable every 6-8 hours
     Route: 042
  2. BUPRENORPHINE [Suspect]
     Route: 042
  3. BUPRENORPHINE [Suspect]
     Indication: PAIN MANAGEMENT
     Route: 042
  4. BUPRENORPHINE [Suspect]
     Route: 042
  5. BUPRENORPHINE [Suspect]
     Route: 042
  6. BUPRENORPHINE [Suspect]
     Indication: PAIN MANAGEMENT
     Dosage: 35 mcg/h
     Route: 062
  7. BUPRENORPHINE [Suspect]
     Dosage: 52.5 mcg/h
     Route: 062
  8. BUPRENORPHINE [Suspect]
     Dosage: 70 mcg/h
     Route: 062
  9. BUPRENORPHINE [Suspect]
     Dosage: 105 mcg/h
     Route: 062
  10. BUPRENORPHINE [Suspect]
     Dosage: 2520 mcg/daily
     Route: 062

REACTIONS (2)
  - Disease progression [Fatal]
  - Pain [None]
